FAERS Safety Report 21354508 (Version 1)
Quarter: 2022Q3

REPORT INFORMATION
  Report Type: Spontaneous
  Country: US (occurrence: None)
  Receive Date: 20220920
  Receipt Date: 20220920
  Transmission Date: 20221026
  Serious: Yes (Hospitalization)
  Sender: FDA-Public Use
  Company Number: None

PATIENT
  Age: 19 Year
  Sex: Male

DRUGS (1)
  1. TUBERSOL [Suspect]
     Active Substance: TUBERCULIN PURIFIED PROTEIN DERIVATIVE

REACTIONS (6)
  - Syncope [None]
  - Altered state of consciousness [None]
  - Unresponsive to stimuli [None]
  - Limb discomfort [None]
  - Asthenia [None]
  - Hypoaesthesia [None]

NARRATIVE: CASE EVENT DATE: 20220901
